FAERS Safety Report 7414769-5 (Version None)
Quarter: 2011Q2

REPORT INFORMATION
  Report Type: 
  Country: None (occurrence: None)
  Receive Date: 20110406
  Receipt Date: 20110329
  Transmission Date: 20111010
  Serious: Yes (Other)
  Sender: FDA-Public Use
  Company Number: B0710711A

PATIENT
  Age: 11 Year
  Sex: Male

DRUGS (2)
  1. VALPROATE SODIUM [Concomitant]
  2. LAMOTRIGINE [Suspect]
     Indication: PETIT MAL EPILEPSY
     Dosage: 7 MG/KG/ PER DAY

REACTIONS (3)
  - OVERDOSE [None]
  - TOXICITY TO VARIOUS AGENTS [None]
  - OCULOGYRIC CRISIS [None]
